FAERS Safety Report 5399369-3 (Version None)
Quarter: 2007Q3

REPORT INFORMATION
  Report Type: 
  Country: None (occurrence: None)
  Receive Date: 20070727
  Receipt Date: 20070720
  Transmission Date: 20080115
  Serious: Yes (Hospitalization, Other)
  Sender: FDA-Public Use
  Company Number: JP-ASTRAZENECA-2007AP03924

PATIENT
  Age: 40 Year
  Sex: Female

DRUGS (3)
  1. TAMOXIFEN CITRATE [Suspect]
     Indication: BREAST CANCER
     Route: 048
     Dates: start: 20040101
  2. UNSPECIFIED [Concomitant]
     Indication: BREAST CANCER
     Dates: start: 20040101
  3. MEDROXYPROGESTERONE ACETATE [Concomitant]
     Dates: start: 20050401

REACTIONS (1)
  - ACUTE MYELOID LEUKAEMIA [None]
